FAERS Safety Report 6509639-0 (Version None)
Quarter: 2009Q4

REPORT INFORMATION
  Report Type: 
  Country: None (occurrence: None)
  Receive Date: 20091216
  Receipt Date: 20091203
  Transmission Date: 20100525
  Serious: Yes (Other)
  Sender: FDA-Public Use
  Company Number: WAES 0311DEU00040

PATIENT
  Age: 72 Year
  Sex: Female

DRUGS (9)
  1. COZAAR [Suspect]
     Indication: CARDIAC FAILURE CONGESTIVE
     Dosage: 50 MG DAILY PO
     Route: 048
  2. ATORVASTATIN CALCIUM [Concomitant]
  3. CLOPIDOGREL BISULFATE [Concomitant]
  4. DIGITOXIN INJ [Concomitant]
  5. MAGNESIUM (UNSPECIFIED) [Concomitant]
  6. METOPROLOL TARTRATE [Concomitant]
  7. OMEPRAZOLE [Concomitant]
  8. SPIRONOLACTONE [Concomitant]
  9. TORSEMIDE [Concomitant]

REACTIONS (1)
  - CORONARY BYPASS THROMBOSIS [None]
